FAERS Safety Report 9298402 (Version 5)
Quarter: 2013Q4

REPORT INFORMATION
  Report Type: Spontaneous
  Country: US (occurrence: US)
  Receive Date: 20130520
  Receipt Date: 20131113
  Transmission Date: 20140711
  Serious: Yes (Hospitalization, Disabling, Other)
  Sender: FDA-Public Use
  Company Number: US-MERCK-1305USA009516

PATIENT
  Sex: Female
  Weight: 54.42 kg

DRUGS (9)
  1. FOSAMAX [Suspect]
     Indication: OSTEOPOROSIS
     Dosage: 70 MG, QW
     Route: 048
     Dates: start: 200306, end: 201102
  2. ALENDRONATE SODIUM [Suspect]
     Indication: OSTEOPOROSIS
     Dosage: 70 MG, UNK
     Route: 048
     Dates: start: 20080311, end: 20080429
  3. PROLIA [Concomitant]
     Indication: OSTEOPOROSIS
     Dosage: 60 MG, TWICE YEARLY
     Route: 058
     Dates: start: 201202
  4. NEXIUM [Concomitant]
     Indication: HIATUS HERNIA
     Dosage: 40 MG, QD
     Route: 048
     Dates: start: 200108
  5. FOLIC ACID [Concomitant]
     Indication: BLOOD HOMOCYSTEINE INCREASED
     Dosage: 1MG-3MG, QD
     Route: 048
     Dates: start: 200305
  6. CELEBREX [Concomitant]
     Indication: ARTHRITIS
     Dosage: 200 MG, QD
     Route: 048
     Dates: start: 200306
  7. METOCLOPRAMIDE [Concomitant]
     Dosage: UNK
     Dates: start: 200305
  8. CALCIUM (UNSPECIFIED) [Concomitant]
     Indication: OSTEOPOROSIS
  9. VITAMIN D (UNSPECIFIED) [Concomitant]
     Indication: OSTEOPOROSIS
     Dosage: 50000 IU, QW

REACTIONS (29)
  - Femur fracture [Recovered/Resolved]
  - Open reduction of fracture [Unknown]
  - Anaemia postoperative [Unknown]
  - Incision site complication [Unknown]
  - Medical device removal [Unknown]
  - Post-traumatic neck syndrome [Unknown]
  - Bladder disorder [Unknown]
  - Hypertension [Unknown]
  - Osteopenia [Unknown]
  - Hypercholesterolaemia [Unknown]
  - Weight increased [Unknown]
  - Acquired oesophageal web [Unknown]
  - Dermatitis [Unknown]
  - Carpal tunnel syndrome [Unknown]
  - Tendonitis [Unknown]
  - Intervertebral disc protrusion [Unknown]
  - Scoliosis [Unknown]
  - Vitamin D deficiency [Unknown]
  - Spondylolisthesis [Unknown]
  - Migraine [Unknown]
  - Muscular weakness [Unknown]
  - Chest pain [Unknown]
  - Arthritis [Unknown]
  - Cardiac disorder [Unknown]
  - Lumbar radiculopathy [Unknown]
  - Dysphagia [Unknown]
  - Dysphagia [Unknown]
  - Back pain [Unknown]
  - Pain in extremity [Unknown]
